FAERS Safety Report 8669526 (Version 2)
Quarter: 2012Q4

REPORT INFORMATION
  Report Type: 
  Country: US (occurrence: US)
  Receive Date: 20120718
  Receipt Date: 20120830
  Transmission Date: 20130627
  Serious: No
  Sender: FDA-Public Use
  Company Number: US-PFIZER INC-2012168436

PATIENT
  Age: 47 Year
  Sex: Female
  Weight: 61.22 kg

DRUGS (6)
  1. LYRICA [Suspect]
     Indication: NEURALGIA
     Dosage: 200 mg, 2x/day
     Route: 048
     Dates: start: 20120706
  2. LYRICA [Suspect]
     Indication: FIBROMYALGIA
  3. KEPPRA [Concomitant]
     Indication: COMPLEX PARTIAL SEIZURES
     Dosage: 500 mg, 4x/day
  4. PROMETHAZINE [Concomitant]
     Indication: NAUSEA
     Dosage: UNK, as needed
  5. CYCLOBENZAPRINE [Concomitant]
     Dosage: 10 mg, as needed
  6. HYDROMORPHONE [Concomitant]
     Dosage: UNK

REACTIONS (9)
  - Dizziness [Unknown]
  - Thirst [Unknown]
  - Dry mouth [Unknown]
  - Tremor [Unknown]
  - Musculoskeletal stiffness [Unknown]
  - Middle insomnia [Unknown]
  - Disturbance in attention [Unknown]
  - Arthralgia [Unknown]
  - Vein disorder [Unknown]
